FAERS Safety Report 23582565 (Version 1)
Quarter: 2024Q1

REPORT INFORMATION
  Report Type: Spontaneous
  Country: JP (occurrence: JP)
  Receive Date: 20240229
  Receipt Date: 20240229
  Transmission Date: 20240410
  Serious: Yes (Other)
  Sender: FDA-Public Use
  Company Number: JP-JNJFOC-20240266249

PATIENT
  Sex: Male
  Weight: 0.538 kg

DRUGS (25)
  1. EPOPROSTENOL [Suspect]
     Active Substance: EPOPROSTENOL
     Indication: Pulmonary arterial hypertension
     Dosage: DOSE UNKNOWN,GRADUALLY INCREASED
     Route: 064
     Dates: start: 20190323, end: 201903
  2. EPOPROSTENOL [Suspect]
     Active Substance: EPOPROSTENOL
     Indication: Pulmonary arterial hypertension
  3. EPOPROSTENOL [Suspect]
     Active Substance: EPOPROSTENOL
     Indication: Pulmonary arterial hypertension
  4. DOBUTAMINE [Concomitant]
     Active Substance: DOBUTAMINE HYDROCHLORIDE
     Dosage: 3 GAMMA
     Route: 064
     Dates: end: 20190326
  5. MILRINONE [Concomitant]
     Active Substance: MILRINONE
     Indication: Right ventricular failure
     Dosage: 0.125GAMMA
     Route: 064
     Dates: start: 201903, end: 20190326
  6. MILRINONE [Concomitant]
     Active Substance: MILRINONE
     Indication: Right ventricular failure
     Route: 064
     Dates: start: 20190319, end: 20190326
  7. OXYGEN [Concomitant]
     Active Substance: OXYGEN
     Indication: Pulmonary arterial hypertension
     Dosage: DOSE UNKNOWN
     Route: 064
     Dates: end: 20190326
  8. TADALAFIL [Concomitant]
     Active Substance: TADALAFIL
     Indication: Pulmonary arterial hypertension
     Route: 064
     Dates: end: 201903
  9. TADALAFIL [Concomitant]
     Active Substance: TADALAFIL
     Indication: Pulmonary arterial hypertension
     Route: 064
     Dates: start: 201903, end: 201903
  10. TADALAFIL [Concomitant]
     Active Substance: TADALAFIL
     Indication: Pulmonary arterial hypertension
     Route: 064
     Dates: start: 201903, end: 20190326
  11. ADCIRCA [Concomitant]
     Active Substance: TADALAFIL
     Indication: Pulmonary arterial hypertension
     Dosage: 2.5MG-40MGX2/DAY
     Route: 064
     Dates: start: 20190319, end: 20190326
  12. MIRTAZAPINE [Concomitant]
     Active Substance: MIRTAZAPINE
     Route: 064
  13. MIRTAZAPINE [Concomitant]
     Active Substance: MIRTAZAPINE
     Route: 064
     Dates: end: 20190326
  14. LANSOPRAZOLE [Concomitant]
     Active Substance: LANSOPRAZOLE
     Indication: Prophylaxis
     Route: 064
     Dates: start: 20190320, end: 20190326
  15. DOBUTAMINE HYDROCHLORIDE [Concomitant]
     Active Substance: DOBUTAMINE HYDROCHLORIDE
     Indication: Right ventricular failure
     Route: 064
     Dates: start: 20190319, end: 20190326
  16. HEPARIN [Concomitant]
     Active Substance: HEPARIN SODIUM
     Indication: Pulmonary arterial hypertension
     Route: 064
     Dates: start: 20190320, end: 20190326
  17. IRON SUCROSE [Concomitant]
     Active Substance: IRON SUCROSE
     Indication: Normocytic anaemia
     Route: 064
     Dates: start: 20190322, end: 20190326
  18. REMIFENTANIL [Concomitant]
     Active Substance: REMIFENTANIL
     Indication: Anaesthesia procedure
     Dosage: 2V-5VX1/DAY
     Route: 064
     Dates: start: 20190326, end: 20190326
  19. FENTANYL [Concomitant]
     Active Substance: FENTANYL\FENTANYL CITRATE
     Indication: Anaesthesia procedure
     Route: 064
     Dates: start: 20190326, end: 20190326
  20. FENTANYL [Concomitant]
     Active Substance: FENTANYL\FENTANYL CITRATE
     Indication: Anaesthesia procedure
     Dosage: 2AX1-2/DAY
     Route: 064
     Dates: start: 20190326, end: 20190326
  21. OXYTOCIN [Concomitant]
     Active Substance: OXYTOCIN
     Indication: Caesarean section
     Route: 064
     Dates: start: 20190326, end: 20190326
  22. NOREPINEPHRINE HYDROCHLORIDE, (+/-)- [Concomitant]
     Active Substance: NOREPINEPHRINE HYDROCHLORIDE, (+/-)-
     Indication: General anaesthesia
     Route: 064
     Dates: start: 20190326, end: 20190326
  23. AMPICILLIN [Concomitant]
     Active Substance: AMPICILLIN
     Indication: Prophylaxis
     Route: 064
     Dates: start: 20190326, end: 20190326
  24. GENTAMICIN SULFATE [Concomitant]
     Active Substance: GENTAMICIN SULFATE
     Indication: Prophylaxis
     Route: 064
     Dates: start: 20190326, end: 20190326
  25. PRECEDEX [Concomitant]
     Active Substance: DEXMEDETOMIDINE HYDROCHLORIDE
     Indication: Analgesic therapy
     Route: 064
     Dates: start: 20190326, end: 20190326

REACTIONS (3)
  - Bronchopulmonary dysplasia [Unknown]
  - Premature baby [Unknown]
  - Foetal exposure during pregnancy [Unknown]

NARRATIVE: CASE EVENT DATE: 20190323
